FAERS Safety Report 7097838-1 (Version None)
Quarter: 2010Q4

REPORT INFORMATION
  Report Type: 
  Country: None (occurrence: None)
  Receive Date: 20101112
  Receipt Date: 20100602
  Transmission Date: 20110411
  Serious: Yes (Other)
  Sender: FDA-Public Use
  Company Number: US-BAYER-201022378NA

PATIENT
  Age: 46 Year
  Sex: Female
  Weight: 88 kg

DRUGS (11)
  1. YAZ [Suspect]
     Indication: MENORRHAGIA
     Route: 048
     Dates: start: 20061101
  2. YAZ [Suspect]
     Route: 048
     Dates: start: 20060727, end: 20061001
  3. LEXAPRO [Concomitant]
     Indication: DEPRESSION
     Route: 065
     Dates: start: 20061109
  4. PHENERGAN [Concomitant]
  5. HYDROCODONE [Concomitant]
  6. TRAMADOL HCL [Concomitant]
  7. ASPIRIN [Concomitant]
  8. CONTRACEPTIVES [Concomitant]
  9. LEXAPRO [Concomitant]
     Route: 065
     Dates: start: 20061109
  10. MEDROL [Concomitant]
     Indication: NAUSEA
     Route: 065
     Dates: start: 20090613
  11. MEDROXYPROGESTERONE [Concomitant]
     Route: 048
     Dates: start: 20080226

REACTIONS (8)
  - ABDOMINAL PAIN [None]
  - ASTHENIA [None]
  - CHOLECYSTITIS [None]
  - HEADACHE [None]
  - HYPOMENORRHOEA [None]
  - METRORRHAGIA [None]
  - NAUSEA [None]
  - VOMITING [None]
